FAERS Safety Report 8987548 (Version 1)
Quarter: 2012Q4

REPORT INFORMATION
  Report Type: 
  Country: AR (occurrence: AR)
  Receive Date: 20121227
  Receipt Date: 20121227
  Transmission Date: 20130627
  Serious: Yes (Other)
  Sender: FDA-Public Use
  Company Number: PHHY2012AR120179

PATIENT
  Sex: Female

DRUGS (3)
  1. ACLASTA [Suspect]
     Indication: OSTEOPOROSIS
     Dosage: UNK UKN, annually
     Route: 042
     Dates: start: 2008
  2. ACLASTA [Suspect]
     Dosage: UNK UKN, annually
     Route: 042
     Dates: start: 2009
  3. ACLASTA [Suspect]
     Dosage: UNK UKN, annually
     Route: 042
     Dates: start: 20100101

REACTIONS (2)
  - Osteoarthritis [Recovered/Resolved]
  - Arthralgia [Recovering/Resolving]
